FAERS Safety Report 25684209 (Version 6)
Quarter: 2025Q4

REPORT INFORMATION
  Report Type: Spontaneous
  Country: US (occurrence: None)
  Receive Date: 20250815
  Receipt Date: 20251224
  Transmission Date: 20260117
  Serious: Yes (Hospitalization)
  Sender: SYNDAX
  Company Number: US-SYNDAX PHARMACEUTICALS, INC.-2025US000614

PATIENT
  Sex: Female
  Weight: 14.399 kg

DRUGS (1)
  1. REVUFORJ [Suspect]
     Active Substance: REVUMENIB CITRATE
     Indication: Product used for unknown indication
     Dosage: 50 MILLIGRAM, EVERY 12
     Route: 061

REACTIONS (9)
  - Urinary tract infection [Unknown]
  - White blood cell count decreased [Unknown]
  - Polydipsia [Unknown]
  - Rash [Unknown]
  - Infection [Unknown]
  - Product use issue [Unknown]
  - Product dose omission issue [Unknown]
  - Neutrophil count decreased [Unknown]
  - Product use issue [Unknown]
